FAERS Safety Report 5007395-9 (Version None)
Quarter: 2006Q2

REPORT INFORMATION
  Report Type: 
  Country: None (occurrence: None)
  Receive Date: 20060517
  Receipt Date: 20060509
  Transmission Date: 20061013
  Serious: Yes (Other)
  Sender: FDA-Public Use
  Company Number: 2006062923

PATIENT
  Sex: Female

DRUGS (7)
  1. ATARAX [Suspect]
     Indication: ANXIETY
  2. VISTARIL [Suspect]
     Indication: ANXIETY
     Dosage: 25 MG (25 MG, 1 IN 1 D)
     Dates: start: 20060306, end: 20060508
  3. HYDROXYZINE [Suspect]
     Indication: ANXIETY
  4. HYDROXYZINE [Suspect]
     Indication: ANXIETY
  5. NEURONTIN [Concomitant]
  6. CYMBALTA [Concomitant]
  7. LORAZEPAM [Concomitant]

REACTIONS (13)
  - DROOLING [None]
  - DRY THROAT [None]
  - DYSPHAGIA [None]
  - DYSPNOEA [None]
  - EYE SWELLING [None]
  - FATIGUE [None]
  - PHARYNGOLARYNGEAL PAIN [None]
  - PHOTOSENSITIVITY REACTION [None]
  - RETCHING [None]
  - SKIN DISCOLOURATION [None]
  - SWELLING FACE [None]
  - THERAPEUTIC RESPONSE UNEXPECTED WITH DRUG SUBSTITUTION [None]
  - THROAT TIGHTNESS [None]
